FAERS Safety Report 14200027 (Version 1)
Quarter: 2017Q4

REPORT INFORMATION
  Report Type: Spontaneous
  Country: BR (occurrence: BR)
  Receive Date: 20171117
  Receipt Date: 20171117
  Transmission Date: 20180321
  Serious: Yes (Hospitalization, Other)
  Sender: FDA-Public Use
  Company Number: BR-PFIZER INC-2017400508

PATIENT
  Age: 50 Year
  Sex: Female

DRUGS (8)
  1. LYRICA [Suspect]
     Active Substance: PREGABALIN
     Indication: FIBROMYALGIA
     Dosage: 75 MG, 2X/DAY (ONE CAPSULE EVERY 12 HOURS)
     Route: 048
     Dates: start: 2014
  2. LYRICA [Suspect]
     Active Substance: PREGABALIN
     Indication: SPINAL PAIN
     Dosage: 75 MG, 1 OR 2 MORE ^TABLETS^
     Route: 048
  3. AMOXICILLIN. [Concomitant]
     Active Substance: AMOXICILLIN
     Indication: ENDODONTIC PROCEDURE
     Dosage: UNK
  4. MILGAMMA [Concomitant]
     Active Substance: VITAMIN B
     Dosage: UNK
     Dates: start: 201707
  5. LYRICA [Suspect]
     Active Substance: PREGABALIN
     Indication: TENDONITIS
  6. LYRICA [Suspect]
     Active Substance: PREGABALIN
     Indication: SPINAL OSTEOARTHRITIS
  7. RIVOTRIL [Concomitant]
     Active Substance: CLONAZEPAM
     Indication: PAIN
     Dosage: 2 MG, UNK
  8. NOVALGINA [Concomitant]
     Active Substance: METAMIZOLE SODIUM
     Indication: PAIN
     Dosage: UNK
     Dates: start: 2014

REACTIONS (6)
  - Pain [Recovered/Resolved]
  - Extra dose administered [Recovered/Resolved]
  - Fall [Recovered/Resolved]
  - Peripheral swelling [Recovered/Resolved]
  - Hypertension [Recovered/Resolved]
  - Somnolence [Recovered/Resolved]

NARRATIVE: CASE EVENT DATE: 2014
